FAERS Safety Report 15333553 (Version 2)
Quarter: 2018Q3

REPORT INFORMATION
  Report Type: Spontaneous
  Country: DE (occurrence: DE)
  Receive Date: 20180830
  Receipt Date: 20180913
  Transmission Date: 20181010
  Serious: Yes (Hospitalization, Other)
  Sender: FDA-Public Use
  Company Number: DE-TORRENT-00009679

PATIENT
  Age: 77 Year
  Sex: Male

DRUGS (8)
  1. ERGENYL [Suspect]
     Active Substance: VALPROIC ACID
     Indication: PRODUCT USED FOR UNKNOWN INDICATION
     Route: 048
     Dates: start: 20180303
  2. AZOPT [Concomitant]
     Active Substance: BRINZOLAMIDE
     Indication: PRODUCT USED FOR UNKNOWN INDICATION
     Dosage: 4 MG / B.A.W.
     Dates: start: 20180210
  3. OXAZEPAM. [Concomitant]
     Active Substance: OXAZEPAM
     Indication: PRODUCT USED FOR UNKNOWN INDICATION
     Route: 048
     Dates: start: 20180214, end: 20180220
  4. RISPERIDONE. [Suspect]
     Active Substance: RISPERIDONE
     Indication: PRODUCT USED FOR UNKNOWN INDICATION
     Route: 048
     Dates: start: 20180201, end: 20180213
  5. ENALAPRIL [Concomitant]
     Active Substance: ENALAPRIL
     Indication: PRODUCT USED FOR UNKNOWN INDICATION
     Route: 048
     Dates: start: 20180201
  6. DOMINAL [Concomitant]
     Indication: PRODUCT USED FOR UNKNOWN INDICATION
     Route: 048
     Dates: start: 20180213, end: 20180228
  7. FUROSEMID [Concomitant]
     Active Substance: FUROSEMIDE
     Indication: PRODUCT USED FOR UNKNOWN INDICATION
     Route: 048
     Dates: start: 20180203
  8. SIMVASTATIN. [Concomitant]
     Active Substance: SIMVASTATIN
     Indication: PRODUCT USED FOR UNKNOWN INDICATION
     Route: 048
     Dates: start: 20180131

REACTIONS (1)
  - Pleurothotonus [Recovering/Resolving]

NARRATIVE: CASE EVENT DATE: 20180306
